FAERS Safety Report 4639842-6 (Version None)
Quarter: 2005Q2

REPORT INFORMATION
  Report Type: 
  Country: None (occurrence: None)
  Receive Date: 20050328
  Receipt Date: 20050217
  Transmission Date: 20051028
  Serious: No
  Sender: FDA-Public Use
  Company Number: USA050188001

PATIENT
  Age: 13 Year
  Sex: Female

DRUGS (2)
  1. STRATTERA [Suspect]
     Indication: DISTURBANCE IN ATTENTION
     Dosage: 40 MG DAY
     Dates: start: 20030801
  2. NUTROPIN [Concomitant]

REACTIONS (2)
  - BLOOD PRESSURE INCREASED [None]
  - GROWTH RETARDATION [None]
